FAERS Safety Report 10409736 (Version 1)
Quarter: 2014Q3

REPORT INFORMATION
  Report Type: Spontaneous
  Country: FR (occurrence: FR)
  Receive Date: 20140826
  Receipt Date: 20140826
  Transmission Date: 20150326
  Serious: Yes (Hospitalization)
  Sender: FDA-Public Use
  Company Number: FR-SA-2014SA113930

PATIENT
  Age: 43 Year
  Sex: Male

DRUGS (9)
  1. AERIUS [Concomitant]
     Active Substance: DESLORATADINE
     Dates: start: 20140515
  2. NASACORT [Suspect]
     Active Substance: TRIAMCINOLONE ACETONIDE
     Indication: NASOPHARYNGITIS
     Route: 045
     Dates: start: 20140509, end: 20140514
  3. FLANID [Suspect]
     Active Substance: TIAPROFENIC ACID
     Indication: NASOPHARYNGITIS
     Route: 048
     Dates: start: 20140509, end: 20140514
  4. FEXOFENADINE [Concomitant]
     Active Substance: FEXOFENADINE\FEXOFENADINE HYDROCHLORIDE
     Dates: start: 20140515
  5. SMECTA [Concomitant]
     Active Substance: MONTMORILLONITE
     Dates: start: 20140515
  6. FEXOFENADINE [Concomitant]
     Active Substance: FEXOFENADINE\FEXOFENADINE HYDROCHLORIDE
     Dates: start: 20140516
  7. PREDNISOLONE. [Concomitant]
     Active Substance: PREDNISOLONE
     Dates: start: 20140516
  8. ZOMIG [Suspect]
     Active Substance: ZOLMITRIPTAN
     Indication: MIGRAINE
     Route: 048
     Dates: start: 20140513, end: 20140513
  9. AUGMENTIN [Concomitant]
     Active Substance: AMOXICILLIN\CLAVULANATE POTASSIUM
     Dates: start: 20140515

REACTIONS (1)
  - Erythema [Recovered/Resolved]

NARRATIVE: CASE EVENT DATE: 20140514
